FAERS Safety Report 5661279-1 (Version None)
Quarter: 2008Q1

REPORT INFORMATION
  Report Type: 
  Country: None (occurrence: None)
  Receive Date: 20080312
  Receipt Date: 20080310
  Transmission Date: 20080703
  Serious: Yes (Other)
  Sender: FDA-Public Use
  Company Number: D0056323B

PATIENT
  Age: 15 Day
  Sex: Male

DRUGS (1)
  1. LAMICTAL [Suspect]
     Dosage: 400MG PER DAY
     Route: 048

REACTIONS (6)
  - DRUG EXPOSURE DURING PREGNANCY [None]
  - DRUG EXPOSURE VIA BREAST MILK [None]
  - FATIGUE [None]
  - FEEDING DISORDER NEONATAL [None]
  - JAUNDICE [None]
  - JAUNDICE NEONATAL [None]
